FAERS Safety Report 8907098 (Version 4)
Quarter: 2013Q1

REPORT INFORMATION
  Report Type: Spontaneous
  Country: JP (occurrence: JP)
  Receive Date: 20121114
  Receipt Date: 20130228
  Transmission Date: 20140127
  Serious: Yes (Other)
  Sender: FDA-Public Use
  Company Number: JP-009507513-1211JPN004704

PATIENT
  Age: 56 Year
  Sex: Male
  Weight: 77.4 kg

DRUGS (20)
  1. GASTER D [Suspect]
     Indication: ABDOMINAL PAIN UPPER
     Dosage: 20 MG, QD
     Route: 048
     Dates: start: 20120622, end: 20120808
  2. PROGRAF [Suspect]
     Indication: IMMUNOSUPPRESSION
     Dosage: 2 MG, UID/QD
     Route: 041
     Dates: end: 20120811
  3. AMLODIN (AMLODIPINE BESYLATE) [Suspect]
     Indication: HYPERTENSION
     Dosage: 5 MG, QD
     Route: 048
     Dates: start: 20120627, end: 20120808
  4. FLUCONAZOLE [Concomitant]
     Dosage: UNK
     Dates: end: 20120903
  5. ACICLOVIN [Concomitant]
     Dosage: 200 MG, UNK
     Route: 048
     Dates: end: 20120903
  6. BAKTAR [Concomitant]
     Route: 048
  7. MAGMITT [Concomitant]
     Dosage: UNK
     Route: 048
     Dates: start: 20120630, end: 20120912
  8. HIRUDOID [Concomitant]
     Dosage: LOTION 0.8%
  9. MAGNESIUM SULFATE [Concomitant]
     Dosage: 1 MEQ/ML
  10. POTASSIUM CHLORIDE [Concomitant]
     Dosage: 20 MEQ, UNK
  11. DENOSINE [Concomitant]
     Dosage: 500 MG, UNK
     Dates: start: 20120719, end: 20120810
  12. PREDONINE [Concomitant]
     Dosage: 20 MG, UNK
     Dates: start: 20120806, end: 20120912
  13. CHLOR-TRIMETON [Concomitant]
     Dosage: 10 MG, UNK
     Dates: end: 20120909
  14. SODIUM PHOSPHATE, DIBASIC [Concomitant]
     Dosage: 500 MMOL/L
  15. BACTRAMIN [Concomitant]
     Dosage: UNK
     Dates: start: 20120625, end: 20120827
  16. CEFMETAZOLE SODIUM [Concomitant]
     Dosage: UNK
     Dates: start: 20120619, end: 20120724
  17. VANCOMYCIN [Concomitant]
     Dosage: UNK
     Dates: start: 20120722, end: 20120724
  18. FLAGYL [Concomitant]
     Dosage: UNK
     Dates: start: 20120715, end: 20120723
  19. CEFEPIME [Concomitant]
     Dosage: UNK
     Dates: start: 20120712, end: 20120718
  20. PREDNISOLONE [Concomitant]
     Dosage: UNK
     Dates: start: 20120710, end: 20120730

REACTIONS (4)
  - Acute graft versus host disease [Unknown]
  - Alanine aminotransferase increased [Recovering/Resolving]
  - Aspartate aminotransferase increased [Recovering/Resolving]
  - Drug ineffective [Unknown]
